FAERS Safety Report 6753838-X (Version None)
Quarter: 2010Q2

REPORT INFORMATION
  Report Type: 
  Country: None (occurrence: None)
  Receive Date: 20100520
  Receipt Date: 20090506
  Transmission Date: 20101027
  Serious: Yes (Other)
  Sender: FDA-Public Use
  Company Number: 2009209388

PATIENT
  Age: 54 Year
  Sex: Female

DRUGS (11)
  1. PROVERA [Suspect]
     Dosage: 2.5 MG, ORAL
     Route: 048
     Dates: start: 19900702, end: 19990102
  2. OGEN [Suspect]
     Dosage: 0.625 MG
     Dates: start: 19950101
  3. PREMARIN [Suspect]
     Indication: MENOPAUSAL SYMPTOMS
     Dosage: 0.625 MG
     Dates: start: 19900720, end: 19990611
  4. PREMPRO [Suspect]
     Indication: MENOPAUSAL SYMPTOMS
     Dosage: 0.625/5 MG
     Dates: start: 19990101, end: 20010101
  5. ESTRACE [Suspect]
     Indication: MENOPAUSAL SYMPTOMS
     Dosage: 1 MG
     Dates: start: 19921218, end: 19960812
  6. ESTRADERM [Suspect]
     Indication: MENOPAUSAL SYMPTOMS
     Dosage: 0.05 MG
     Dates: start: 19930101
  7. CLIMARA [Suspect]
     Indication: MENOPAUSAL SYMPTOMS
     Dosage: 0.05 MG
     Dates: start: 19950101
  8. CYCRIN [Suspect]
     Indication: MENOPAUSAL SYMPTOMS
     Dosage: 2.5 MG
     Dates: start: 19960101
  9. PROMETRIUM [Suspect]
     Indication: MENOPAUSAL SYMPTOMS
     Dosage: 100 MG
     Dates: start: 19990101
  10. PREMPHASE (PREMARIN;CYCRIN 14/14) [Suspect]
     Dosage: 0.625/5 MG
     Dates: start: 19970101
  11. SYNTHROID [Concomitant]

REACTIONS (1)
  - BREAST CANCER FEMALE [None]
